FAERS Safety Report 14289099 (Version 3)
Quarter: 2018Q2

REPORT INFORMATION
  Report Type: Spontaneous
  Country: DE (occurrence: GR)
  Receive Date: 20171214
  Receipt Date: 20180422
  Transmission Date: 20180711
  Serious: Yes (Other)
  Sender: FDA-Public Use
  Company Number: DE-APOPHARMA USA, INC.-2017AP022775

PATIENT
  Sex: Female
  Weight: 25 kg

DRUGS (2)
  1. FERRIPROX [Suspect]
     Active Substance: DEFERIPRONE
     Indication: THALASSAEMIA
     Dosage: 30 MG/KG, TID
     Route: 048
     Dates: start: 20080307, end: 20080314
  2. DEFEROXAMINE [Concomitant]
     Active Substance: DEFEROXAMINE\DEFEROXAMINE MESYLATE
     Indication: THALASSAEMIA
     Dosage: 30 MG/KG, QD
     Route: 065

REACTIONS (1)
  - Agranulocytosis [Recovered/Resolved]

NARRATIVE: CASE EVENT DATE: 20080314
